FAERS Safety Report 23502659 (Version 1)
Quarter: 2024Q1

REPORT INFORMATION
  Report Type: Spontaneous
  Country: US (occurrence: US)
  Receive Date: 20240208
  Receipt Date: 20240208
  Transmission Date: 20240410
  Serious: No
  Sender: FDA-Public Use
  Company Number: US-INTRA-CELLULAR THERAPIES, INC.-2023ICT00802

PATIENT
  Age: 29 Year
  Sex: Female
  Weight: 55.329 kg

DRUGS (3)
  1. CAPLYTA [Suspect]
     Active Substance: LUMATEPERONE
     Indication: Bipolar disorder
     Dosage: 42 MG (1 PILL), 1X/DAY
     Route: 048
     Dates: start: 20230511, end: 202305
  2. CAPLYTA [Suspect]
     Active Substance: LUMATEPERONE
     Indication: Bipolar disorder
     Dosage: 10.5 MG, 1X/DAY
     Route: 048
     Dates: start: 202305, end: 20230531
  3. LITHIUM [Concomitant]
     Active Substance: LITHIUM

REACTIONS (3)
  - Lethargy [Recovered/Resolved]
  - Irritability [Not Recovered/Not Resolved]
  - Sedation [Recovered/Resolved]

NARRATIVE: CASE EVENT DATE: 20230501
